FAERS Safety Report 5523058-5 (Version None)
Quarter: 2007Q4

REPORT INFORMATION
  Report Type: 
  Country: None (occurrence: None)
  Receive Date: 20071119
  Receipt Date: 20071107
  Transmission Date: 20080405
  Serious: Yes (Hospitalization)
  Sender: FDA-Public Use
  Company Number: DISCS-07-0702

PATIENT
  Age: 31 Year
  Sex: Male

DRUGS (1)
  1. DIPRIVAN [Suspect]
     Indication: INDUCTION OF ANAESTHESIA
     Dosage: 200 MG, ONCE, INTRAVENOUS
     Route: 042
     Dates: start: 20070810, end: 20070810

REACTIONS (2)
  - INFLUENZA LIKE ILLNESS [None]
  - TREMOR [None]
